FAERS Safety Report 9226031 (Version 1)
Quarter: 2013Q2

REPORT INFORMATION
  Report Type: Spontaneous
  Country: PL (occurrence: PL)
  Receive Date: 20130411
  Receipt Date: 20130411
  Transmission Date: 20140414
  Serious: Yes (Other)
  Sender: FDA-Public Use
  Company Number: PL-ROCHE-1211686

PATIENT
  Age: 53 Year
  Sex: Female

DRUGS (11)
  1. HERCEPTIN [Suspect]
     Indication: BREAST CANCER
     Route: 065
  2. XELODA [Suspect]
     Indication: BREAST CANCER
     Route: 065
  3. VINORELBINE [Concomitant]
  4. LAPATINIB DITOSYLATE [Concomitant]
  5. GEMCITABINE HCL [Concomitant]
  6. CISPLATIN [Concomitant]
  7. MYOCET [Concomitant]
  8. ENDOXAN [Concomitant]
  9. MITOMYCIN C [Concomitant]
  10. VINBLASTINE [Concomitant]
  11. CARBOPLATIN [Concomitant]

REACTIONS (3)
  - Metastases to bone [Unknown]
  - Metastases to lung [Unknown]
  - Metastases to liver [Unknown]
